FAERS Safety Report 8198906-3 (Version None)
Quarter: 2012Q1

REPORT INFORMATION
  Report Type: 
  Country: None (occurrence: None)
  Receive Date: 20120309
  Receipt Date: 20120222
  Transmission Date: 20120608
  Serious: No
  Sender: FDA-Public Use
  Company Number: US-AMGEN-USASP2012008446

PATIENT
  Age: 65 Year
  Sex: Female
  Weight: 73.016 kg

DRUGS (4)
  1. PROLIA [Suspect]
     Indication: OSTEOPOROSIS POSTMENOPAUSAL
     Dosage: 60 MG, Q6MO
     Route: 058
     Dates: start: 20110216, end: 20110824
  2. LISINOPRIL [Concomitant]
  3. CALCIUM [Concomitant]
  4. MAGNESIUM [Concomitant]

REACTIONS (2)
  - BURNING SENSATION [None]
  - PAIN IN JAW [None]
